FAERS Safety Report 17707821 (Version 4)
Quarter: 2021Q1

REPORT INFORMATION
  Report Type: Report from Study
  Country: BR (occurrence: BR)
  Receive Date: 20200424
  Receipt Date: 20210315
  Transmission Date: 20210419
  Serious: Yes (Hospitalization, Other)
  Sender: FDA-Public Use
  Company Number: BR-ELI_LILLY_AND_COMPANY-BR202004005773

PATIENT
  Age: 82 Year
  Sex: Female

DRUGS (1)
  1. FORTEO [Suspect]
     Active Substance: TERIPARATIDE
     Indication: OSTEOPOROSIS
     Dosage: 20 UG, DAILY
     Route: 058
     Dates: start: 20181012, end: 202012

REACTIONS (10)
  - Anaemia [Recovering/Resolving]
  - Dementia Alzheimer^s type [Recovering/Resolving]
  - Muscle atrophy [Recovering/Resolving]
  - Eye contusion [Recovering/Resolving]
  - Lung disorder [Recovering/Resolving]
  - Weight decreased [Recovering/Resolving]
  - Fall [Unknown]
  - Gait inability [Unknown]
  - Eating disorder [Unknown]
  - Eye swelling [Recovering/Resolving]

NARRATIVE: CASE EVENT DATE: 202003
